FAERS Safety Report 15111508 (Version 2)
Quarter: 2018Q3

REPORT INFORMATION
  Report Type: Spontaneous
  Country: JP (occurrence: JP)
  Receive Date: 20180705
  Receipt Date: 20180913
  Transmission Date: 20181010
  Serious: Yes (Hospitalization)
  Sender: FDA-Public Use
  Company Number: JP-ELI_LILLY_AND_COMPANY-JP201807000707

PATIENT
  Age: 76 Year
  Sex: Female
  Weight: 44 kg

DRUGS (8)
  1. ZYPREXA [Suspect]
     Active Substance: OLANZAPINE
     Dosage: 10 MG, DAILY
     Route: 048
     Dates: start: 20180126, end: 20180222
  2. ZYPREXA [Suspect]
     Active Substance: OLANZAPINE
     Dosage: 10 MG, DAILY
     Route: 048
     Dates: start: 20180618
  3. ZYPREXA [Suspect]
     Active Substance: OLANZAPINE
     Indication: HALLUCINATION, AUDITORY
     Dosage: 5 MG, DAILY
     Route: 048
     Dates: start: 20180112, end: 20180114
  4. EVAMYL [Concomitant]
     Active Substance: LORMETAZEPAM
     Dosage: 2 MG, DAILY
  5. MAGNESIUM OXIDE. [Concomitant]
     Active Substance: MAGNESIUM OXIDE
     Dosage: 500 MG, DAILY
  6. ZYPREXA [Suspect]
     Active Substance: OLANZAPINE
     Indication: PARKINSON^S DISEASE
     Dosage: 7.5 MG, DAILY
     Route: 048
     Dates: start: 20180115, end: 20180125
  7. ZYPREXA [Suspect]
     Active Substance: OLANZAPINE
     Dosage: 12.5 MG, DAILY
     Route: 048
     Dates: start: 20180223, end: 20180617
  8. LEPRINTON [Concomitant]
     Dosage: 400 MG, DAILY
     Dates: start: 20180214

REACTIONS (2)
  - Off label use [Not Recovered/Not Resolved]
  - Hyperammonaemia [Recovered/Resolved]

NARRATIVE: CASE EVENT DATE: 20180112
